FAERS Safety Report 9779467 (Version 3)
Quarter: 2014Q1

REPORT INFORMATION
  Report Type: Spontaneous
  Country: JP (occurrence: JP)
  Receive Date: 20131223
  Receipt Date: 20140130
  Transmission Date: 20141002
  Serious: Yes (Hospitalization)
  Sender: FDA-Public Use
  Company Number: JP-B.I. PHARMACEUTICALS,INC./RIDGEFIELD-2013-BI-42815NB

PATIENT
  Age: 79 Year
  Sex: Male
  Weight: 66 kg

DRUGS (5)
  1. PRAZAXA [Suspect]
     Indication: ATRIAL FIBRILLATION
     Dosage: 220 MG
     Route: 048
     Dates: start: 20120823
  2. BAYASPIRIN / ASPIRIN [Concomitant]
     Dosage: 100 MG
     Route: 048
  3. MEVALOTIN / PRAVASTATIN SODIUM [Concomitant]
     Dosage: 10 MG
     Route: 048
  4. AMLODIN OD / AMLODIPINE BESILATE [Concomitant]
     Dosage: 5 MG
     Route: 048
  5. CO-DIO / VALSARTAN_HYDROCHLOROTHIAZIDE COMBINED DRUG [Concomitant]
     Dosage: DAILY DOSE: 1TIME/1DAY
     Route: 048
     Dates: start: 20130418

REACTIONS (2)
  - Embolic cerebral infarction [Recovered/Resolved with Sequelae]
  - Drug effect incomplete [Unknown]
